FAERS Safety Report 8027530-8 (Version None)
Quarter: 2012Q1

REPORT INFORMATION
  Report Type: 
  Country: None (occurrence: None)
  Receive Date: 20120106
  Receipt Date: 20111227
  Transmission Date: 20120608
  Serious: Yes (Other)
  Sender: FDA-Public Use
  Company Number: US-RB-032633-12

PATIENT
  Age: 58 Year
  Sex: Female

DRUGS (1)
  1. MUCINEX [Suspect]
     Indication: PRODUCT USED FOR UNKNOWN INDICATION
     Dosage: 2 TABLETS TOTAL
     Route: 048

REACTIONS (4)
  - HYPOAESTHESIA [None]
  - SINUSITIS [None]
  - PALPITATIONS [None]
  - ERYTHEMA [None]
